FAERS Safety Report 7705775-1 (Version None)
Quarter: 2011Q3

REPORT INFORMATION
  Report Type: 
  Country: None (occurrence: None)
  Receive Date: 20110824
  Receipt Date: 20110824
  Transmission Date: 20111222
  Serious: Yes (Hospitalization)
  Sender: FDA-Public Use
  Company Number: None

PATIENT
  Sex: Female
  Weight: 6.4 kg

DRUGS (1)
  1. CORTICOTROPIN [Suspect]
     Indication: INFANTILE SPASMS
     Dosage: 45 UNITS
     Route: 030
     Dates: start: 20110414, end: 20110517

REACTIONS (14)
  - DYSKINESIA [None]
  - INFANTILE SPASMS [None]
  - HYPERTENSION [None]
  - HYPOKALAEMIA [None]
  - RESPIRATORY TRACT INFECTION VIRAL [None]
  - BACTERIAL TRANSLOCATION [None]
  - OCCULT BLOOD POSITIVE [None]
  - PNEUMATOSIS INTESTINALIS [None]
  - VIRAL INFECTION [None]
  - DIARRHOEA [None]
  - ENTERITIS [None]
  - VOMITING [None]
  - SLEEP DISORDER [None]
  - PYREXIA [None]
